FAERS Safety Report 10146456 (Version 1)
Quarter: 2014Q2

REPORT INFORMATION
  Report Type: Spontaneous
  Country: US (occurrence: None)
  Receive Date: 20140429
  Receipt Date: 20140429
  Transmission Date: 20141212
  Serious: Yes (Other)
  Sender: FDA-Public Use
  Company Number: AUR-APL-2014-05042

PATIENT
  Sex: 0

DRUGS (4)
  1. GABAPENTIN (GABAPENTIN) [Suspect]
     Indication: PRODUCT USED FOR UNKNOWN INDICATION
  2. TRAMADOL (TRAMADOL) [Suspect]
     Indication: PRODUCT USED FOR UNKNOWN INDICATION
  3. TRAZODONE (TRAZODONE) [Suspect]
     Indication: PRODUCT USED FOR UNKNOWN INDICATION
  4. CYMBALTA [Suspect]
     Indication: PRODUCT USED FOR UNKNOWN INDICATION

REACTIONS (1)
  - Suicidal ideation [None]
